FAERS Safety Report 25563390 (Version 1)
Quarter: 2025Q3

REPORT INFORMATION
  Report Type: Spontaneous
  Country: GB (occurrence: GB)
  Receive Date: 20250716
  Receipt Date: 20250716
  Transmission Date: 20251021
  Serious: Yes (Life-Threatening, Hospitalization)
  Sender: ABBVIE
  Company Number: GB-ABBVIE-6372799

PATIENT
  Sex: Female
  Weight: 63 kg

DRUGS (1)
  1. NITROGLYCERIN [Suspect]
     Active Substance: NITROGLYCERIN
     Indication: Anal fissure
     Route: 065
     Dates: start: 20250709, end: 20250710

REACTIONS (6)
  - Migraine [Recovering/Resolving]
  - Diarrhoea [Recovered/Resolved with Sequelae]
  - Vomiting [Recovered/Resolved with Sequelae]
  - Headache [Recovered/Resolved with Sequelae]
  - Palpitations [Recovered/Resolved with Sequelae]
  - Dizziness [Recovering/Resolving]

NARRATIVE: CASE EVENT DATE: 20250709
